FAERS Safety Report 15807165 (Version 1)
Quarter: 2019Q1

REPORT INFORMATION
  Report Type: Spontaneous
  Country: FI (occurrence: FI)
  Receive Date: 20190110
  Receipt Date: 20190110
  Transmission Date: 20190417
  Serious: Yes (Life-Threatening, Other)
  Sender: FDA-Public Use
  Company Number: FI-SA-2019SA004686

PATIENT
  Age: 51 Year
  Sex: Male

DRUGS (2)
  1. TECFIDERA [Concomitant]
     Active Substance: DIMETHYL FUMARATE
     Indication: MULTIPLE SCLEROSIS
     Dosage: 480 MG, QD
     Route: 048
     Dates: start: 20160812, end: 20171229
  2. AUBAGIO [Suspect]
     Active Substance: TERIFLUNOMIDE
     Indication: MULTIPLE SCLEROSIS
     Dosage: 14 MG, QD
     Route: 048
     Dates: start: 20180105

REACTIONS (1)
  - B-cell small lymphocytic lymphoma [Unknown]

NARRATIVE: CASE EVENT DATE: 20181120
